FAERS Safety Report 19238172 (Version 1)
Quarter: 2021Q2

REPORT INFORMATION
  Report Type: Spontaneous
  Country: US (occurrence: US)
  Receive Date: 20210510
  Receipt Date: 20210510
  Transmission Date: 20210717
  Serious: Yes (Hospitalization)
  Sender: FDA-Public Use
  Company Number: None

PATIENT
  Age: 58 Year
  Sex: Male

DRUGS (6)
  1. HYDROMORPHON [Concomitant]
     Active Substance: HYDROMORPHONE
  2. ONDANSETRON [Concomitant]
     Active Substance: ONDANSETRON
  3. LEVETIRACETAM. [Concomitant]
     Active Substance: LEVETIRACETAM
  4. TEMOZOLOMIDE. [Suspect]
     Active Substance: TEMOZOLOMIDE
     Indication: BRAIN NEOPLASM MALIGNANT
     Route: 048
     Dates: start: 20201027
  5. BACTRIM [Concomitant]
     Active Substance: SULFAMETHOXAZOLE\TRIMETHOPRIM
  6. DEXAMETHASONE. [Concomitant]
     Active Substance: DEXAMETHASONE

REACTIONS (6)
  - Seizure [None]
  - Vomiting [None]
  - Product prescribing issue [None]
  - Product dose omission issue [None]
  - Product availability issue [None]
  - Nausea [None]

NARRATIVE: CASE EVENT DATE: 20210302
